FAERS Safety Report 17866395 (Version 1)
Quarter: 2020Q2

REPORT INFORMATION
  Report Type: Spontaneous
  Country: US (occurrence: US)
  Receive Date: 20200605
  Receipt Date: 20200605
  Transmission Date: 20200714
  Serious: Yes (Other)
  Sender: FDA-Public Use
  Company Number: US-GW PHARMA-202006USGW02018

PATIENT

DRUGS (2)
  1. EPIDIOLEX [Suspect]
     Active Substance: CANNABIDIOL
     Indication: LENNOX-GASTAUT SYNDROME
     Dosage: 40 MILLIGRAM, BID (WILL RESTART THIS WEEK UNK JUN 2020, NEXT TITRATION DOSE: 80 MG BID)
     Route: 048
     Dates: start: 202005, end: 202005
  2. EPIDIOLEX [Suspect]
     Active Substance: CANNABIDIOL
     Indication: EPILEPSY

REACTIONS (4)
  - Allergic reaction to excipient [Unknown]
  - Product dose omission [Unknown]
  - Urticaria [Unknown]
  - Product administered to patient of inappropriate age [Unknown]

NARRATIVE: CASE EVENT DATE: 202005
